FAERS Safety Report 5294653-6 (Version None)
Quarter: 2007Q2

REPORT INFORMATION
  Report Type: 
  Country: None (occurrence: None)
  Receive Date: 20070409
  Receipt Date: 20070409
  Transmission Date: 20071010
  Serious: Yes (Hospitalization)
  Sender: FDA-Public Use
  Company Number: None

PATIENT
  Sex: Male
  Weight: 110.7 kg

DRUGS (2)
  1. FENTANYL [Suspect]
     Indication: SEDATION
     Dosage: 150 MCG   ONCE   IV
     Route: 042
     Dates: start: 20061117
  2. MIDAZOLAM IV [Suspect]
     Indication: SEDATION
     Dosage: 3 MG   ONCE   IV
     Route: 042
     Dates: start: 20061117

REACTIONS (6)
  - BLOOD CREATININE ABNORMAL [None]
  - BLOOD GLUCOSE INCREASED [None]
  - BLOOD UREA INCREASED [None]
  - BODY TEMPERATURE DECREASED [None]
  - HAEMOGLOBIN DECREASED [None]
  - RESPIRATORY ARREST [None]
